FAERS Safety Report 6436366-0 (Version None)
Quarter: 2009Q4

REPORT INFORMATION
  Report Type: 
  Country: None (occurrence: None)
  Receive Date: 20091111
  Receipt Date: 20091028
  Transmission Date: 20100525
  Serious: Yes (Disabling, Other)
  Sender: FDA-Public Use
  Company Number: PHEH2009US09729

PATIENT
  Sex: Female
  Weight: 52.608 kg

DRUGS (2)
  1. RECLAST [Suspect]
     Indication: OSTEOPOROSIS
     Dosage: UNK, YEARLY
     Route: 042
     Dates: start: 20080516
  2. DAPSONE [Concomitant]
     Dosage: 50 MG, QD

REACTIONS (8)
  - HAEMORRHAGE [None]
  - INFECTION [None]
  - NERVE INJURY [None]
  - PAIN [None]
  - SWELLING [None]
  - TOOTH DISORDER [None]
  - TOOTH EXTRACTION [None]
  - TOOTH LOSS [None]
